FAERS Safety Report 4883302-4 (Version None)
Quarter: 2006Q1

REPORT INFORMATION
  Report Type: 
  Country: None (occurrence: None)
  Receive Date: 20060118
  Receipt Date: 20050829
  Transmission Date: 20060701
  Serious: Yes (Hospitalization, Disabling, Other)
  Sender: FDA-Public Use
  Company Number: US-GLAXOSMITHKLINE-A0572527A

PATIENT
  Age: 36 Year
  Sex: Female
  Weight: 83.6 kg

DRUGS (6)
  1. REQUIP [Suspect]
     Indication: RESTLESS LEGS SYNDROME
     Dosage: 1MG PER DAY
     Route: 048
     Dates: start: 20050806, end: 20050813
  2. PREDNISONE [Concomitant]
     Indication: ARTHRITIS
     Dosage: 5MG PER DAY
     Route: 048
  3. METHOTREXATE [Concomitant]
     Indication: ARTHRITIS
     Dosage: 20MG WEEKLY
     Route: 048
  4. CLONAZEPAM [Concomitant]
     Indication: RESTLESS LEGS SYNDROME
     Dosage: .5MG AT NIGHT
     Route: 048
  5. FOLIC ACID [Concomitant]
     Indication: ARTHRITIS
     Dosage: 2MG PER DAY
     Route: 048
  6. EFFEXOR [Concomitant]
     Indication: DEPRESSION
     Dosage: 112.5MG PER DAY
     Route: 048

REACTIONS (1)
  - DYSTONIA [None]
